FAERS Safety Report 14480219 (Version 9)
Quarter: 2018Q2

REPORT INFORMATION
  Report Type: Spontaneous
  Country: US (occurrence: US)
  Receive Date: 20180202
  Receipt Date: 20180627
  Transmission Date: 20180711
  Serious: Yes (Other)
  Sender: FDA-Public Use
  Company Number: US-PFIZER INC-2018028859

PATIENT
  Age: 88 Year
  Sex: Female

DRUGS (7)
  1. IBRANCE [Suspect]
     Active Substance: PALBOCICLIB
     Dosage: 100 MG, CYCLIC (100 MG ONE CAPSULE DAILY, 21 DAYS ON, 7 DAYS OFF)
     Dates: start: 20180618
  2. IBRANCE [Suspect]
     Active Substance: PALBOCICLIB
     Dosage: 100 MG, CYCLIC (DAILY)
     Route: 048
     Dates: start: 20180215, end: 2018
  3. FASLODEX [Concomitant]
     Active Substance: FULVESTRANT
     Indication: BREAST CANCER FEMALE
     Dosage: UNK (Q4W)
     Dates: start: 20171113
  4. IBRANCE [Suspect]
     Active Substance: PALBOCICLIB
     Indication: BREAST CANCER FEMALE
     Dosage: 125 MG, CYCLIC (DAILY)
     Route: 048
     Dates: start: 20180104, end: 201801
  5. FASLODEX [Concomitant]
     Active Substance: FULVESTRANT
     Dosage: UNK, PATIENT HAD 4-5 DOSES OF FASLODEX
     Dates: start: 20180104
  6. IBRANCE [Suspect]
     Active Substance: PALBOCICLIB
     Dosage: 100 MG, ONCE DAILY (21 DAYS ON)
     Route: 048
     Dates: start: 20180104
  7. IBRANCE [Suspect]
     Active Substance: PALBOCICLIB
     Dosage: 100 MG, CYCLIC (ONCE DAILY FOR 21 DAYS ON, 14 DAYS OFF)
     Route: 048
     Dates: start: 20180427, end: 20180515

REACTIONS (10)
  - Rash [Recovered/Resolved]
  - Diarrhoea [Unknown]
  - White blood cell count decreased [Unknown]
  - Fatigue [Not Recovered/Not Resolved]
  - Full blood count abnormal [Recovered/Resolved]
  - Head titubation [Unknown]
  - Dysarthria [Unknown]
  - Condition aggravated [Not Recovered/Not Resolved]
  - Leukopenia [Recovered/Resolved]
  - Arthralgia [Not Recovered/Not Resolved]

NARRATIVE: CASE EVENT DATE: 2018
